FAERS Safety Report 17020382 (Version 1)
Quarter: 2019Q4

REPORT INFORMATION
  Report Type: Spontaneous
  Country: US (occurrence: US)
  Receive Date: 20191111
  Receipt Date: 20191111
  Transmission Date: 20200122
  Serious: Yes (Hospitalization)
  Sender: FDA-Public Use
  Company Number: None

PATIENT
  Age: 62 Year
  Sex: Male
  Weight: 71.3 kg

DRUGS (13)
  1. OLAPARIB. [Suspect]
     Active Substance: OLAPARIB
  2. KETOCONAZOLE (NIZORAL) SHAMPOO 2% [Concomitant]
     Dates: start: 20181210
  3. SENNA 8.6MG [Concomitant]
     Dates: start: 20191020
  4. ASPIRIN 81MG [Concomitant]
     Active Substance: ASPIRIN
     Dates: start: 20160406
  5. PROCHLORPERAZINE TABLET 10MG [Concomitant]
     Dates: start: 20191104
  6. VITAMIN D-3 5000 UNITS [Concomitant]
  7. MIRALAX17G [Concomitant]
     Dates: end: 20191102
  8. OXYCODONE TABLET 5MG [Concomitant]
     Dates: start: 20191104
  9. OLAPARIB TABLET 150MG [Concomitant]
     Dates: start: 20191104
  10. AMLODIPINE BESYLATE TABLET 5MG [Concomitant]
     Dates: start: 20170930
  11. LISINOPRIL TABLET 10MG [Concomitant]
     Active Substance: LISINOPRIL
     Dates: start: 20190930
  12. CREON 36/114/180 [Concomitant]
     Dates: start: 20191009
  13. TIZANIDINE HCI TABLET 2MG [Concomitant]
     Dates: start: 20171017

REACTIONS (2)
  - Pseudocyst [None]
  - Haemorrhage [None]

NARRATIVE: CASE EVENT DATE: 20191108
